FAERS Safety Report 19089616 (Version 1)
Quarter: 2021Q2

REPORT INFORMATION
  Report Type: Spontaneous
  Country: US (occurrence: US)
  Receive Date: 20210403
  Receipt Date: 20210403
  Transmission Date: 20210717
  Serious: Yes (Hospitalization, Congenital Anomaly, Other)
  Sender: FDA-Public Use
  Company Number: US-CIPLA LTD.-2021US02560

PATIENT

DRUGS (21)
  1. CARBOPLATIN. [Suspect]
     Active Substance: CARBOPLATIN
     Indication: CONGENITAL RETINOBLASTOMA
     Dosage: 128.8 MG ON DAY 1 AND 2 OF CYCLE 1
     Route: 042
  2. CARBOPLATIN. [Suspect]
     Active Substance: CARBOPLATIN
     Dosage: 130.2 MG ON DAY 1 AND 2 OF CYCLE 5
     Route: 042
  3. ETOPOSIDE. [Suspect]
     Active Substance: ETOPOSIDE
     Indication: CONGENITAL RETINOBLASTOMA
     Dosage: 55.2 MG ON DAY 1 AND 2 OF CYCLE 1
     Route: 042
  4. ETOPOSIDE. [Suspect]
     Active Substance: ETOPOSIDE
     Dosage: 55.8 MG ON DAY 1 AND 2 OF CYCLE 5
     Route: 042
  5. ETOPOSIDE. [Suspect]
     Active Substance: ETOPOSIDE
     Dosage: 54.6 MG ON DAY 1 AND 2 OF CYCLE 2
     Route: 042
  6. VINCRISTINE [Suspect]
     Active Substance: VINCRISTINE
     Indication: CONGENITAL RETINOBLASTOMA
     Dosage: 0.5 MG ON DAY OF CYCLES 1 TO 6
     Route: 042
  7. G?CSF [Concomitant]
     Active Substance: GRANULOCYTE COLONY-STIMULATING FACTOR NOS
     Indication: PRODUCT USED FOR UNKNOWN INDICATION
     Dosage: UNK
     Route: 065
  8. CARBOPLATIN. [Suspect]
     Active Substance: CARBOPLATIN
     Dosage: 135.8  MG ON DAY 1 AND 2 OF CYCLE 3
     Route: 042
  9. TOPOTECAN [Suspect]
     Active Substance: TOPOTECAN HYDROCHLORIDE
     Dosage: 4 MG CYCLE 3
     Route: 013
  10. CARBOPLATIN. [Suspect]
     Active Substance: CARBOPLATIN
     Dosage: 127.4  MG ON DAY 1 AND 2 OF CYCLE 2
     Route: 042
  11. CARBOPLATIN. [Suspect]
     Active Substance: CARBOPLATIN
     Dosage: 137.2  MG ON DAY 1 AND 2 OF CYCLE 6
     Route: 042
  12. ETOPOSIDE. [Suspect]
     Active Substance: ETOPOSIDE
     Dosage: 58.2 MG ON DAY 1 AND 2 OF CYCLE 3
     Route: 042
  13. CARBOPLATIN. [Suspect]
     Active Substance: CARBOPLATIN
     Dosage: 131.6 MG ON DAY 1 AND 2 OF CYCLE 4
     Route: 042
  14. CARBOPLATIN. [Suspect]
     Active Substance: CARBOPLATIN
     Dosage: 50 MG CYCLE 1 TO 5
     Route: 013
  15. TOPOTECAN [Suspect]
     Active Substance: TOPOTECAN HYDROCHLORIDE
     Indication: CONGENITAL RETINOBLASTOMA
     Dosage: 2 MG CYCLE 1
     Route: 013
  16. TOPOTECAN [Suspect]
     Active Substance: TOPOTECAN HYDROCHLORIDE
     Dosage: 3 MG CYCLE 2
     Route: 013
  17. TOPOTECAN [Suspect]
     Active Substance: TOPOTECAN HYDROCHLORIDE
     Dosage: 5 MG CYCLE 4
     Route: 013
  18. TOPOTECAN [Suspect]
     Active Substance: TOPOTECAN HYDROCHLORIDE
     Dosage: 6 MG CYCLE 5
     Route: 013
  19. ETOPOSIDE. [Suspect]
     Active Substance: ETOPOSIDE
     Dosage: 58.8 MG ON DAY 1 AND 2 OF CYCLE 6
     Route: 042
  20. MELPHALAN. [Suspect]
     Active Substance: MELPHALAN
     Indication: CONGENITAL RETINOBLASTOMA
     Dosage: 5 MG CYCLE 1 TO 5
  21. ETOPOSIDE. [Suspect]
     Active Substance: ETOPOSIDE
     Dosage: 56.4 MG ON DAY 1 AND 2 OF CYCLE 4
     Route: 042

REACTIONS (13)
  - Disease recurrence [Unknown]
  - Anaemia [Unknown]
  - Rash [Unknown]
  - Conjunctival hyperaemia [Unknown]
  - Congenital retinoblastoma [Unknown]
  - Swelling of eyelid [Unknown]
  - Urinary tract infection [Unknown]
  - Toxicity to various agents [Unknown]
  - Neutropenia [Unknown]
  - Leukopenia [Unknown]
  - Thrombocytopenia [Unknown]
  - Cytopenia [Unknown]
  - Febrile neutropenia [Unknown]
